FAERS Safety Report 19110940 (Version 1)
Quarter: 2021Q2

REPORT INFORMATION
  Report Type: Spontaneous
  Country: US (occurrence: US)
  Receive Date: 20210408
  Receipt Date: 20210408
  Transmission Date: 20210717
  Serious: No
  Sender: FDA-Public Use
  Company Number: US-JNJFOC-20210352802

PATIENT

DRUGS (1)
  1. WOMENS ROGAINE UNSCENTED [Suspect]
     Active Substance: MINOXIDIL
     Indication: PRODUCT USED FOR UNKNOWN INDICATION
     Route: 061

REACTIONS (7)
  - Feeling hot [Unknown]
  - Application site pain [Unknown]
  - Pruritus [Unknown]
  - Urticaria [Unknown]
  - Application site irritation [Unknown]
  - Application site pruritus [Unknown]
  - Ear swelling [Unknown]
